FAERS Safety Report 4345150-3 (Version None)
Quarter: 2004Q2

REPORT INFORMATION
  Report Type: 
  Country: None (occurrence: None)
  Receive Date: 20040420
  Receipt Date: 20040408
  Transmission Date: 20050107
  Serious: Yes (Disabling)
  Sender: FDA-Public Use
  Company Number: GB-JNJFOC-20040401803

PATIENT
  Age: 42 Year
  Sex: Female

DRUGS (3)
  1. MICRONOR [Suspect]
     Indication: MENORRHAGIA
     Dosage: 10 MG, ORAL
     Route: 048
     Dates: start: 20030401
  2. MEFENAMIC ACID [Concomitant]
  3. TRANEXAMIC ACID [Concomitant]

REACTIONS (1)
  - ALOPECIA [None]
